FAERS Safety Report 7386366-1 (Version None)
Quarter: 2011Q1

REPORT INFORMATION
  Report Type: 
  Country: None (occurrence: None)
  Receive Date: 20110331
  Receipt Date: 20110318
  Transmission Date: 20110831
  Serious: Yes (Hospitalization)
  Sender: FDA-Public Use
  Company Number: PHHY2011US23196

PATIENT
  Sex: Female
  Weight: 41.73 kg

DRUGS (5)
  1. VITAMIN D [Concomitant]
  2. EXJADE [Suspect]
     Indication: MYELODYSPLASTIC SYNDROME
     Dosage: 750 MG, DAILY
     Route: 048
     Dates: start: 20101028
  3. TYLENOL (CAPLET) [Concomitant]
  4. TRAMADOL [Concomitant]
  5. PREMARIN [Concomitant]

REACTIONS (1)
  - PNEUMONIA [None]
